FAERS Safety Report 24591064 (Version 2)
Quarter: 2025Q3

REPORT INFORMATION
  Report Type: Spontaneous
  Country: US (occurrence: US)
  Receive Date: 20241107
  Receipt Date: 20250802
  Transmission Date: 20251020
  Serious: Yes (Hospitalization, Other)
  Sender: ALEXION PHARMACEUTICALS
  Company Number: US-AstraZeneca-CH-00739096A

PATIENT
  Sex: Female

DRUGS (1)
  1. FASENRA [Suspect]
     Active Substance: BENRALIZUMAB

REACTIONS (17)
  - Hot flush [Unknown]
  - Cough [Unknown]
  - Rash [Unknown]
  - Aphonia [Unknown]
  - Deafness [Unknown]
  - Pain in extremity [Unknown]
  - Visual impairment [Unknown]
  - Dyspnoea [Unknown]
  - Secretion discharge [Unknown]
  - Swelling face [Unknown]
  - Neuralgia [Unknown]
  - Inflammation [Unknown]
  - Blood immunoglobulin G increased [Unknown]
  - Hypoacusis [Unknown]
  - Nausea [Unknown]
  - Pain in jaw [Unknown]
  - Sinus pain [Unknown]

NARRATIVE: CASE EVENT DATE: 20240801
